FAERS Safety Report 5529447-7 (Version None)
Quarter: 2007Q4

REPORT INFORMATION
  Report Type: 
  Country: None (occurrence: None)
  Receive Date: 20071129
  Receipt Date: 20071115
  Transmission Date: 20080405
  Serious: Yes (Hospitalization, Other)
  Sender: FDA-Public Use
  Company Number: IT-ELI_LILLY_AND_COMPANY-IT200711004248

PATIENT
  Sex: Female
  Weight: 73.3 kg

DRUGS (3)
  1. SOMATROPIN [Suspect]
     Indication: BLOOD GROWTH HORMONE DECREASED
     Dosage: 0.2 MG, DAILY (1/D)
     Route: 058
     Dates: start: 20060703, end: 20070701
  2. CORTONE [Concomitant]
     Indication: ADRENAL INSUFFICIENCY
     Dosage: UNK, UNKNOWN
     Route: 065
     Dates: start: 20040401
  3. EUTIROX [Concomitant]
     Indication: HYPOTHYROIDISM
     Dosage: 100 UG, UNKNOWN
     Route: 065
     Dates: start: 20040401

REACTIONS (2)
  - BREAST CANCER IN SITU [None]
  - PAGET'S DISEASE OF THE BREAST [None]
